FAERS Safety Report 20883935 (Version 1)
Quarter: 2022Q2

REPORT INFORMATION
  Report Type: Spontaneous
  Country: BR (occurrence: BR)
  Receive Date: 20220527
  Receipt Date: 20220527
  Transmission Date: 20220721
  Serious: Yes (Hospitalization)
  Sender: FDA-Public Use
  Company Number: BR-ViiV Healthcare Limited-BR2022GSK082272

PATIENT

DRUGS (1)
  1. ABACAVIR [Suspect]
     Active Substance: ABACAVIR
     Indication: HIV infection
     Dosage: UNK

REACTIONS (3)
  - Hypotension [Recovering/Resolving]
  - Hyperlactacidaemia [Recovering/Resolving]
  - Toxicity to various agents [Recovering/Resolving]
